FAERS Safety Report 15000584 (Version 1)
Quarter: 2018Q2

REPORT INFORMATION
  Report Type: Spontaneous
  Country: FR (occurrence: FR)
  Receive Date: 20180612
  Receipt Date: 20180612
  Transmission Date: 20180711
  Serious: Yes (Hospitalization)
  Sender: FDA-Public Use
  Company Number: FR-TEVA-2018-FR-905409

PATIENT
  Age: 18 Year
  Sex: Female

DRUGS (4)
  1. TIAPRIDAL [Suspect]
     Active Substance: TIAPRIDE HYDROCHLORIDE
     Indication: MENTAL DISORDER
     Route: 048
     Dates: start: 201705
  2. RISPERDAL [Suspect]
     Active Substance: RISPERIDONE
     Indication: MENTAL DISORDER
     Route: 048
     Dates: start: 201705
  3. PAROXETINE (CHLORHYDRATE DE) ANHYDRE [Suspect]
     Active Substance: PAROXETINE
     Indication: AFFECTIVE DISORDER
     Dosage: 1 DOSAGE FORMS DAILY;
     Route: 048
     Dates: start: 20170714, end: 20170716
  4. TERCIAN [Suspect]
     Active Substance: CYAMEMAZINE
     Indication: MENTAL DISORDER
     Dosage: LE 14/07/17-15/07/2017-16/07/2017
     Route: 048
     Dates: start: 20170714, end: 20170716

REACTIONS (3)
  - Extrapyramidal disorder [Recovered/Resolved with Sequelae]
  - Neuroleptic malignant syndrome [Recovered/Resolved with Sequelae]
  - Pyrexia [Recovered/Resolved]

NARRATIVE: CASE EVENT DATE: 20170718
